FAERS Safety Report 8177414-X (Version None)
Quarter: 2012Q1

REPORT INFORMATION
  Report Type: 
  Country: None (occurrence: None)
  Receive Date: 20120301
  Receipt Date: 20120227
  Transmission Date: 20120608
  Serious: Yes (Life-Threatening, Hospitalization)
  Sender: FDA-Public Use
  Company Number: LU-PFIZER INC-2012038203

PATIENT
  Age: 52 Year
  Sex: Male
  Weight: 79 kg

DRUGS (5)
  1. DEXAMETHASONE [Concomitant]
     Dosage: 16 MG, UNK
     Route: 042
     Dates: start: 20110802, end: 20110808
  2. ZOFRAN [Concomitant]
     Dosage: 8 MG, UNK
     Route: 042
     Dates: start: 20110802, end: 20110809
  3. ARMODAFINIL [Concomitant]
     Dosage: 400 MG, 1X/DAY
     Route: 048
     Dates: start: 20110802, end: 20110811
  4. IDARUBICIN [Concomitant]
     Dosage: 25 MG, 1X/DAY
     Route: 042
     Dates: start: 20110802, end: 20110804
  5. CYTOSAR-U [Suspect]
     Indication: ACUTE MYELOID LEUKAEMIA
     Dosage: 396 MG, DAILY FOR 7 DAYS
     Route: 042
     Dates: start: 20110802, end: 20110808

REACTIONS (3)
  - ACUTE RESPIRATORY DISTRESS SYNDROME [None]
  - PANCYTOPENIA [None]
  - PNEUMONIA [None]
